FAERS Safety Report 22616741 (Version 1)
Quarter: 2023Q2

REPORT INFORMATION
  Report Type: Spontaneous
  Country: DE (occurrence: DE)
  Receive Date: 20230619
  Receipt Date: 20230619
  Transmission Date: 20230721
  Serious: Yes (Other)
  Sender: FDA-Public Use
  Company Number: DE-GILEAD-2023-0632909

PATIENT
  Age: 45 Year
  Sex: Female

DRUGS (2)
  1. TRODELVY [Suspect]
     Active Substance: SACITUZUMAB GOVITECAN-HZIY
     Indication: Breast cancer metastatic
     Dosage: UNKNOWN DOSE ON DAYS 1 AND 8 OF CYCLES (TOTAL OF 10 CYCLES)
     Route: 065
     Dates: start: 20220603, end: 20230110
  2. IBANDRONIC ACID [Concomitant]
     Active Substance: IBANDRONIC ACID
     Dosage: UNK
     Dates: start: 202107

REACTIONS (3)
  - Disease progression [Unknown]
  - Renal failure [Unknown]
  - Lymphoedema [Unknown]

NARRATIVE: CASE EVENT DATE: 20230101
